FAERS Safety Report 9292525 (Version 3)
Quarter: 2013Q2

REPORT INFORMATION
  Report Type: Spontaneous
  Country: US (occurrence: US)
  Receive Date: 20130516
  Receipt Date: 20130612
  Transmission Date: 20140414
  Serious: No
  Sender: FDA-Public Use
  Company Number: US-009507513-1305USA009845

PATIENT
  Age: 35 Year
  Sex: Female
  Weight: 165.99 kg

DRUGS (5)
  1. PEGINTRON [Suspect]
     Indication: HEPATITIS C
     Dosage: REDIPEN
     Dates: start: 20130503, end: 20130531
  2. VICTRELIS [Suspect]
     Indication: HEPATITIS C
     Dosage: UNK
     Dates: start: 20130531, end: 20130531
  3. REBETOL [Suspect]
     Indication: HEPATITIS C
     Dosage: UNK
     Dates: start: 20130503, end: 20130531
  4. BENADRYL [Concomitant]
  5. CALAMINE [Concomitant]

REACTIONS (13)
  - Mental disorder [Unknown]
  - Irritability [Unknown]
  - Injection site reaction [Unknown]
  - Gait disturbance [Unknown]
  - Urticaria [Unknown]
  - Urticaria [Unknown]
  - Vomiting [Unknown]
  - Diarrhoea [Unknown]
  - Pyrexia [Unknown]
  - Hypersensitivity [Unknown]
  - Malaise [Unknown]
  - Rash generalised [Not Recovered/Not Resolved]
  - Injection site rash [Not Recovered/Not Resolved]
